FAERS Safety Report 7549014-3 (Version None)
Quarter: 2011Q2

REPORT INFORMATION
  Report Type: 
  Country: None (occurrence: None)
  Receive Date: 20110608
  Receipt Date: 20110530
  Transmission Date: 20111010
  Serious: Yes (Other)
  Sender: FDA-Public Use
  Company Number: 2011SP025018

PATIENT
  Age: 60 Year
  Sex: Female
  Weight: 70 kg

DRUGS (3)
  1. LEVOTHYROXINE SODIUM [Concomitant]
  2. NASONEX [Suspect]
     Indication: SINUSITIS
     Dosage: NAS
     Route: 045
     Dates: start: 20110503, end: 20110526
  3. NASONEX [Suspect]
     Indication: SINUSITIS
     Dosage: NAS
     Route: 045
     Dates: start: 20060101

REACTIONS (1)
  - HYPERTENSION [None]
